FAERS Safety Report 26081932 (Version 1)
Quarter: 2025Q4

REPORT INFORMATION
  Report Type: Spontaneous
  Country: US (occurrence: None)
  Receive Date: 20251121
  Receipt Date: 20251121
  Transmission Date: 20260117
  Serious: Yes (Hospitalization)
  Sender: FDA-CTU
  Company Number: None

PATIENT
  Age: 64 Year
  Sex: Female
  Weight: 99.45 kg

DRUGS (11)
  1. CEPHALEXIN [Suspect]
     Active Substance: CEPHALEXIN
     Indication: Knee arthroplasty
     Dosage: FREQUENCY : EVERY 6 HOURS;?
     Route: 048
     Dates: start: 20251022, end: 20251023
  2. Anita Ellipta 62.5 mcg/25mcg [Concomitant]
  3. Aripiprazole 3 mg tab daily [Concomitant]
  4. Atorvastatin 80 mg tab daily [Concomitant]
  5. Duloxetine 30 mg cap 1 daily [Concomitant]
  6. Duloxetine 60 mg cap 1 daily [Concomitant]
  7. VITAMINS [Concomitant]
     Active Substance: VITAMINS
  8. Pantoprazole 40 mg tab 1 daily [Concomitant]
  9. Topiramate 50 mg tab 1.5 tabs 2 times daily [Concomitant]
  10. Vitamin B - 12 1000 mcg [Concomitant]
  11. Vitamin D3 - 2000 units [Concomitant]

REACTIONS (7)
  - Malaise [None]
  - Headache [None]
  - Pain [None]
  - Dizziness [None]
  - Arthralgia [None]
  - Fatigue [None]
  - Gait disturbance [None]

NARRATIVE: CASE EVENT DATE: 20251025
